FAERS Safety Report 7368649-4 (Version None)
Quarter: 2011Q1

REPORT INFORMATION
  Report Type: 
  Country: None (occurrence: None)
  Receive Date: 20110308
  Receipt Date: 20110305
  Transmission Date: 20110831
  Serious: Yes (Life-Threatening, Hospitalization)
  Sender: FDA-Public Use
  Company Number: 2011SP010175

PATIENT
  Sex: Female

DRUGS (2)
  1. MENOPUR [Suspect]
     Indication: PRODUCT USED FOR UNKNOWN INDICATION
  2. PUREGON (FOLLITROPIN BETA /01348901/) [Suspect]
     Indication: PRODUCT USED FOR UNKNOWN INDICATION

REACTIONS (1)
  - CEREBROVASCULAR ACCIDENT [None]
